FAERS Safety Report 4993676-1 (Version None)
Quarter: 2006Q2

REPORT INFORMATION
  Report Type: 
  Country: None (occurrence: None)
  Receive Date: 20060505
  Receipt Date: 20060124
  Transmission Date: 20061013
  Serious: Yes (Hospitalization)
  Sender: FDA-Public Use
  Company Number: US-MERCK-0601USA02933

PATIENT
  Age: 65 Year
  Sex: Female
  Weight: 98 kg

DRUGS (10)
  1. VIOXX [Suspect]
     Indication: ARTHRALGIA
     Route: 048
     Dates: start: 20000131, end: 20040904
  2. LIPITOR [Concomitant]
     Route: 065
  3. NITROSTAT [Concomitant]
     Route: 065
  4. PREMPRO [Concomitant]
     Route: 065
  5. PRILOSEC [Concomitant]
     Route: 065
  6. SYNTHROID [Concomitant]
     Route: 065
  7. TOBRADEX [Concomitant]
     Route: 065
  8. MIACALCIN [Concomitant]
     Route: 065
  9. CARDIZEM [Concomitant]
     Route: 065
  10. ZOLOFT [Concomitant]
     Indication: DEPRESSION
     Route: 065

REACTIONS (10)
  - ARTERIAL STENOSIS [None]
  - ARTHROPATHY [None]
  - CARDIAC DISORDER [None]
  - CATARACT NUCLEAR [None]
  - CHEST PAIN [None]
  - CHRONIC FATIGUE SYNDROME [None]
  - DIABETES MELLITUS [None]
  - DIZZINESS [None]
  - JOINT SWELLING [None]
  - OPTIC ISCHAEMIC NEUROPATHY [None]
